FAERS Safety Report 21216524 (Version 1)
Quarter: 2022Q3

REPORT INFORMATION
  Report Type: Spontaneous
  Country: JP (occurrence: JP)
  Receive Date: 20220816
  Receipt Date: 20220816
  Transmission Date: 20221026
  Serious: Yes (Other)
  Sender: FDA-Public Use
  Company Number: JP-JNJFOC-20220830612

PATIENT

DRUGS (1)
  1. IMBRUVICA [Suspect]
     Active Substance: IBRUTINIB
     Indication: Lymphoma
     Dosage: DOSE UNKNOWN?IBRUTINIB:140MG
     Route: 048

REACTIONS (2)
  - Metastases to lung [Unknown]
  - Rectal cancer [Unknown]
